FAERS Safety Report 23154487 (Version 3)
Quarter: 2024Q1

REPORT INFORMATION
  Report Type: Spontaneous
  Country: JP (occurrence: JP)
  Receive Date: 20231107
  Receipt Date: 20240319
  Transmission Date: 20240409
  Serious: Yes (Hospitalization)
  Sender: FDA-Public Use
  Company Number: JP-ELI_LILLY_AND_COMPANY-JP202310017816

PATIENT
  Age: 70 Year
  Sex: Male

DRUGS (6)
  1. CYRAMZA [Suspect]
     Active Substance: RAMUCIRUMAB
     Indication: Gastrooesophageal cancer recurrent
     Dosage: 8 MG/KG, CYCLICAL
     Route: 041
     Dates: start: 20220713, end: 20221005
  2. PACLITAXEL [Concomitant]
     Active Substance: PACLITAXEL
     Dosage: 80 MG/M2, CYCLICAL
     Route: 041
     Dates: start: 20220713, end: 20221005
  3. MOSAPRIDE CITRATE [Concomitant]
     Active Substance: MOSAPRIDE CITRATE
     Dosage: 15 MG
     Route: 048
  4. LOPERAMIDE [Concomitant]
     Active Substance: LOPERAMIDE
     Dosage: 1 MG
     Route: 048
  5. MIYA-BM [Concomitant]
     Active Substance: CLOSTRIDIUM BUTYRICUM SPORES STRAIN M-55
     Dosage: 3 G
     Route: 048
  6. HERBALS [Concomitant]
     Active Substance: HERBALS
     Dosage: 7.5 G
     Route: 048

REACTIONS (2)
  - Cerebral haemorrhage [Recovered/Resolved with Sequelae]
  - Hypertension [Unknown]

NARRATIVE: CASE EVENT DATE: 20221009
